FAERS Safety Report 19264470 (Version 1)
Quarter: 2021Q2

REPORT INFORMATION
  Report Type: Spontaneous
  Country: US (occurrence: US)
  Receive Date: 20210517
  Receipt Date: 20210517
  Transmission Date: 20210717
  Serious: Yes (Other)
  Sender: FDA-Public Use
  Company Number: None

PATIENT
  Age: 59 Year
  Sex: Female
  Weight: 103.05 kg

DRUGS (2)
  1. BAMLANIVIMAB. [Suspect]
     Active Substance: BAMLANIVIMAB
     Indication: CORONAVIRUS TEST POSITIVE
     Dosage: ?          OTHER FREQUENCY:ONE TIME DOSE;?
     Route: 041
     Dates: start: 20210430, end: 20210430
  2. ETESEVIMAB. [Suspect]
     Active Substance: ETESEVIMAB
     Indication: CORONAVIRUS TEST POSITIVE
     Dosage: ?          OTHER FREQUENCY:ONE TIME DOSE;?
     Route: 041
     Dates: start: 20210430, end: 20210430

REACTIONS (1)
  - Pyrexia [None]

NARRATIVE: CASE EVENT DATE: 20210430
